FAERS Safety Report 24105144 (Version 2)
Quarter: 2024Q3

REPORT INFORMATION
  Report Type: Report from Study
  Country: FR (occurrence: FR)
  Receive Date: 20240717
  Receipt Date: 20240902
  Transmission Date: 20241016
  Serious: Yes (Death)
  Sender: PFIZER
  Company Number: FR-PFIZER INC-202400215005

PATIENT

DRUGS (1)
  1. ELRANATAMAB [Suspect]
     Active Substance: ELRANATAMAB
     Indication: Plasma cell myeloma
     Dosage: UNK
     Dates: start: 202403

REACTIONS (1)
  - Death [Fatal]
